FAERS Safety Report 20777438 (Version 1)
Quarter: 2022Q2

REPORT INFORMATION
  Report Type: Report from Study
  Country: US (occurrence: None)
  Receive Date: 20220503
  Receipt Date: 20220503
  Transmission Date: 20220721
  Serious: Yes (Death)
  Sender: FDA-Public Use
  Company Number: 2022A169764

PATIENT
  Age: 2888 Week
  Sex: Female

DRUGS (1)
  1. IMFINZI [Suspect]
     Active Substance: DURVALUMAB
     Indication: Hepatobiliary cancer
     Dosage: 500MG/10ML
     Route: 042
     Dates: start: 20220316

REACTIONS (1)
  - Death [Fatal]

NARRATIVE: CASE EVENT DATE: 20220413
